FAERS Safety Report 10576589 (Version 1)
Quarter: 2014Q4

REPORT INFORMATION
  Report Type: Spontaneous
  Country: US (occurrence: None)
  Receive Date: 20141110
  Receipt Date: 20141110
  Transmission Date: 20150529
  Serious: Yes (Hospitalization, Disabling)
  Sender: FDA-Public Use
  Company Number: None

PATIENT
  Age: 31 Year
  Sex: Female
  Weight: 102.51 kg

DRUGS (2)
  1. PREDNISONE. [Suspect]
     Active Substance: PREDNISONE
     Indication: PAIN
     Dosage: 1 PILL DAILY
     Route: 048
     Dates: start: 20140528, end: 20141109
  2. PREDNISONE. [Suspect]
     Active Substance: PREDNISONE
     Indication: INFLAMMATION
     Dosage: 1 PILL DAILY
     Route: 048
     Dates: start: 20140528, end: 20141109

REACTIONS (16)
  - Pain [None]
  - Candida infection [None]
  - Systemic lupus erythematosus [None]
  - Arthralgia [None]
  - Chest pain [None]
  - Skin striae [None]
  - Oesophageal ulcer [None]
  - Cushing^s syndrome [None]
  - Osteonecrosis [None]
  - Blood pressure increased [None]
  - Malaise [None]
  - Heart rate increased [None]
  - Weight increased [None]
  - Diabetes mellitus [None]
  - Pyrexia [None]
  - Pollakiuria [None]

NARRATIVE: CASE EVENT DATE: 20140528
